FAERS Safety Report 5889297-9 (Version None)
Quarter: 2008Q3

REPORT INFORMATION
  Report Type: 
  Country: None (occurrence: None)
  Receive Date: 20080919
  Receipt Date: 20080908
  Transmission Date: 20090109
  Serious: Yes (Other)
  Sender: FDA-Public Use
  Company Number: US-WATSON-2008-05435

PATIENT
  Sex: Female

DRUGS (2)
  1. TRI-NORINYL-28 (EST ETH/NORE) (0.035/0.5; 0.035/1; 0.035/0.5) (WATSON) [Suspect]
     Indication: MENORRHAGIA
     Dosage: 1 TABLET, DAILY
     Route: 048
     Dates: start: 20080818
  2. MICROGESTIN UNKNOWN STRENGTH (WATSON LABORATORIES) [Suspect]
     Indication: MENORRHAGIA
     Dosage: 1 TABLET, DAILY
     Route: 048
     Dates: start: 20080701

REACTIONS (4)
  - BREAST DISCHARGE [None]
  - DEPRESSION [None]
  - MENORRHAGIA [None]
  - SUICIDAL IDEATION [None]
